FAERS Safety Report 6930263-X (Version None)
Quarter: 2010Q3

REPORT INFORMATION
  Report Type: 
  Country: None (occurrence: None)
  Receive Date: 20100818
  Receipt Date: 20100809
  Transmission Date: 20110219
  Serious: Yes (Hospitalization)
  Sender: FDA-Public Use
  Company Number: US-ELI_LILLY_AND_COMPANY-US201008003187

PATIENT
  Age: 55 Year
  Sex: Female

DRUGS (9)
  1. PRASUGREL HYDROCHLORIDE [Suspect]
     Indication: ACUTE CORONARY SYNDROME
     Dosage: 10 MG, UNK
  2. PRASUGREL HYDROCHLORIDE [Suspect]
     Dosage: 60 MG, UNK
     Dates: start: 20100129
  3. LISINOPRIL [Concomitant]
     Indication: CARDIAC FAILURE CONGESTIVE
     Dosage: 5 MG, DAILY (1/D)
     Dates: start: 20100617
  4. ASPIRIN [Concomitant]
     Indication: ACUTE CORONARY SYNDROME
     Dosage: 325 MG, UNK
     Dates: start: 20100130
  5. NEXIUM [Concomitant]
     Indication: DYSPEPSIA
     Dosage: 40 MG, DAILY (1/D)
     Route: 048
     Dates: start: 20100129
  6. BYSTOLIC [Concomitant]
     Indication: HYPERTENSION
     Dosage: 5 MG, DAILY (1/D)
     Route: 048
     Dates: start: 20100726
  7. ANGIOMAX [Concomitant]
     Indication: PERCUTANEOUS CORONARY INTERVENTION
     Dosage: 16.1 ML, 3/D
     Route: 042
     Dates: start: 20100129, end: 20100129
  8. THROMBIN LOCAL SOLUTION [Concomitant]
     Indication: CARDIAC PSEUDOANEURYSM
     Dosage: 5000 U, OTHER
     Route: 050
     Dates: start: 20100130, end: 20100130
  9. ZOCOR [Concomitant]
     Indication: HYPERLIPIDAEMIA
     Dosage: 20 MG, DAILY (1/D)
     Route: 048
     Dates: start: 20100129

REACTIONS (1)
  - CHEST PAIN [None]
